FAERS Safety Report 6252994-X (Version None)
Quarter: 2009Q2

REPORT INFORMATION
  Report Type: 
  Country: None (occurrence: None)
  Receive Date: 20090629
  Receipt Date: 20090629
  Transmission Date: 20091009
  Serious: Yes (Hospitalization)
  Sender: FDA-Public Use
  Company Number: None

PATIENT
  Sex: Male
  Weight: 82.5547 kg

DRUGS (9)
  1. DARUNAVIR 400 MG [Suspect]
     Indication: HIV INFECTION
     Dosage: 800 MG DAILY ORAL
     Route: 048
  2. NORVIR [Suspect]
     Indication: HIV INFECTION
     Dosage: 100 MG DAILY ORAL
     Route: 048
  3. CELEXA [Concomitant]
  4. TEMAZEPAM [Concomitant]
  5. TOPROL-XL [Concomitant]
  6. TRICOR [Concomitant]
  7. XANAX [Concomitant]
  8. DEPO-TES TESTOSTERONE [Concomitant]
  9. VITAMIN B-12 [Concomitant]

REACTIONS (1)
  - KIDNEY INFECTION [None]
